FAERS Safety Report 17648364 (Version 1)
Quarter: 2020Q2

REPORT INFORMATION
  Report Type: Spontaneous
  Country: NO (occurrence: NO)
  Receive Date: 20200408
  Receipt Date: 20200408
  Transmission Date: 20200713
  Serious: Yes (Hospitalization, Other)
  Sender: FDA-Public Use
  Company Number: NO-ELI_LILLY_AND_COMPANY-NO202004001047

PATIENT
  Age: 25 Year
  Sex: Male
  Weight: 136 kg

DRUGS (2)
  1. CYMBALTA [Suspect]
     Active Substance: DULOXETINE HYDROCHLORIDE
     Indication: NEURALGIA
     Dosage: 1 TABLET EVERY MORNING
     Route: 065
     Dates: start: 20200220
  2. CYMBALTA [Suspect]
     Active Substance: DULOXETINE HYDROCHLORIDE
     Indication: DEPRESSION

REACTIONS (15)
  - Headache [Unknown]
  - Erectile dysfunction [Not Recovered/Not Resolved]
  - Paralysis [Unknown]
  - Dizziness [Not Recovered/Not Resolved]
  - Ejaculation disorder [Not Recovered/Not Resolved]
  - Nausea [Unknown]
  - Asthenia [Unknown]
  - Amnesia [Unknown]
  - Mental impairment [Unknown]
  - Radiation associated pain [Unknown]
  - Muscle spasms [Unknown]
  - Weight decreased [Not Recovered/Not Resolved]
  - Decreased appetite [Not Recovered/Not Resolved]
  - Cognitive disorder [Not Recovered/Not Resolved]
  - Pseudostroke [Not Recovered/Not Resolved]
